FAERS Safety Report 4891943-3 (Version None)
Quarter: 2006Q1

REPORT INFORMATION
  Report Type: 
  Country: None (occurrence: None)
  Receive Date: 20060123
  Receipt Date: 20060111
  Transmission Date: 20060701
  Serious: Yes (Hospitalization)
  Sender: FDA-Public Use
  Company Number: 2006006818

PATIENT
  Age: 65 Year
  Sex: Male

DRUGS (2)
  1. IRINOTECAN HCL [Suspect]
     Indication: COLORECTAL CANCER METASTATIC
     Dosage: 200 MG (200 MG), INTRAVENOUS
     Route: 042
     Dates: start: 20051130, end: 20051130
  2. CETUXIMAB (CETUXIMAB) [Suspect]
     Indication: COLORECTAL CANCER METASTATIC
     Dosage: 535 MG (535 MG), INTRAVENOUS
     Route: 042
     Dates: start: 20051214, end: 20051214

REACTIONS (1)
  - CARDIAC FAILURE [None]
